FAERS Safety Report 25992536 (Version 1)
Quarter: 2025Q4

REPORT INFORMATION
  Report Type: Spontaneous
  Country: US (occurrence: US)
  Receive Date: 20251103
  Receipt Date: 20251103
  Transmission Date: 20260117
  Serious: No
  Sender: GALPHARM INTERNATIONAL
  Company Number: US-PERRIGO-25US003052

PATIENT
  Age: 85 Year
  Sex: Female
  Weight: 72.562 kg

DRUGS (2)
  1. DOXYLAMINE SUCCINATE [Suspect]
     Active Substance: DOXYLAMINE SUCCINATE
     Indication: Insomnia
     Dosage: 25 MG, QHS
     Route: 048
     Dates: start: 202502, end: 202502
  2. DOXYLAMINE SUCCINATE [Suspect]
     Active Substance: DOXYLAMINE SUCCINATE
     Dosage: 1/2 TABLET, QHS
     Route: 048
     Dates: start: 202502

REACTIONS (3)
  - Fatigue [Recovering/Resolving]
  - Somnolence [Recovering/Resolving]
  - Underdose [Not Recovered/Not Resolved]

NARRATIVE: CASE EVENT DATE: 20250201
